FAERS Safety Report 17195757 (Version 1)
Quarter: 2019Q4

REPORT INFORMATION
  Report Type: Spontaneous
  Country: US (occurrence: US)
  Receive Date: 20191224
  Receipt Date: 20191224
  Transmission Date: 20200122
  Serious: No
  Sender: FDA-Public Use
  Company Number: US-IPSEN BIOPHARMACEUTICALS, INC.-2019-18215

PATIENT
  Age: 46 Year
  Sex: Female

DRUGS (13)
  1. HYDROCODONE BITARTRATE. [Concomitant]
     Active Substance: HYDROCODONE BITARTRATE
  2. ZOFRAN [Concomitant]
     Active Substance: ONDANSETRON HYDROCHLORIDE
  3. XERMELO [Suspect]
     Active Substance: TELOTRISTAT ETHYL
     Indication: CARCINOID TUMOUR OF THE STOMACH
  4. LEVOTHYROXINE. [Concomitant]
     Active Substance: LEVOTHYROXINE
  5. LYRICA [Concomitant]
     Active Substance: PREGABALIN
  6. XERMELO [Suspect]
     Active Substance: TELOTRISTAT ETHYL
     Indication: CARCINOID TUMOUR
     Route: 048
     Dates: start: 20190823
  7. DOXAZOSIN [Concomitant]
     Active Substance: DOXAZOSIN MESYLATE
  8. XARELTO [Concomitant]
     Active Substance: RIVAROXABAN
  9. FUROSEMIDE. [Concomitant]
     Active Substance: FUROSEMIDE
  10. REXULTI [Concomitant]
     Active Substance: BREXPIPRAZOLE
  11. XERMELO [Suspect]
     Active Substance: TELOTRISTAT ETHYL
     Indication: CARCINOID SYNDROME
  12. CYCLOBENZAPRINE. [Concomitant]
     Active Substance: CYCLOBENZAPRINE
  13. DIAZEPAM. [Concomitant]
     Active Substance: DIAZEPAM

REACTIONS (8)
  - Contusion [Unknown]
  - Diarrhoea [Recovered/Resolved]
  - Off label use [Unknown]
  - Vomiting [Unknown]
  - Skin laceration [Unknown]
  - Diarrhoea [Recovered/Resolved]
  - Road traffic accident [Unknown]
  - Decreased appetite [Unknown]

NARRATIVE: CASE EVENT DATE: 20191207
